FAERS Safety Report 5374849-5 (Version None)
Quarter: 2007Q2

REPORT INFORMATION
  Report Type: 
  Country: None (occurrence: None)
  Receive Date: 20070629
  Receipt Date: 20070625
  Transmission Date: 20071010
  Serious: Yes (Other)
  Sender: FDA-Public Use
  Company Number: B0475066A

PATIENT
  Age: 22 Year
  Sex: Female

DRUGS (3)
  1. PAXIL [Suspect]
     Indication: DEPRESSION
     Route: 048
     Dates: start: 20070501
  2. ZOLPIDEM [Concomitant]
     Dosage: 10MG PER DAY
     Route: 048
  3. LENDORMIN [Concomitant]
     Dosage: .25MG PER DAY
     Route: 048

REACTIONS (4)
  - DYSTONIA [None]
  - GAZE PALSY [None]
  - MUSCULOSKELETAL STIFFNESS [None]
  - MYOCLONUS [None]
